FAERS Safety Report 22006323 (Version 1)
Quarter: 2023Q1

REPORT INFORMATION
  Report Type: Spontaneous
  Country: US (occurrence: None)
  Receive Date: 20230216
  Receipt Date: 20230216
  Transmission Date: 20230418
  Serious: Yes (Hospitalization)
  Sender: FDA-Public Use
  Company Number: None

PATIENT
  Age: 55 Year
  Sex: Female

DRUGS (3)
  1. ENBREL [Suspect]
     Active Substance: ETANERCEPT
     Indication: Rheumatoid arthritis
     Dosage: FREQUENCY : WEEKLY;?
     Route: 058
     Dates: start: 20220510
  2. ENBREL [Suspect]
     Active Substance: ETANERCEPT
     Dosage: FREQUENCY : WEEKLY;?
     Route: 058
  3. ACETAMINOPHEN [Concomitant]
     Active Substance: ACETAMINOPHEN

REACTIONS (2)
  - Intestinal obstruction [None]
  - Scar [None]

NARRATIVE: CASE EVENT DATE: 20230101
